FAERS Safety Report 16390680 (Version 1)
Quarter: 2019Q2

REPORT INFORMATION
  Report Type: Spontaneous
  Country: US (occurrence: US)
  Receive Date: 20190604
  Receipt Date: 20190604
  Transmission Date: 20190711
  Serious: Yes (Other)
  Sender: FDA-Public Use
  Company Number: US-PFIZER INC-2019237916

PATIENT
  Age: 67 Year
  Sex: Female

DRUGS (1)
  1. AROMASIN [Suspect]
     Active Substance: EXEMESTANE
     Dosage: 25 MG, UNK

REACTIONS (3)
  - Renal pain [Unknown]
  - Kidney infection [Unknown]
  - Arthralgia [Unknown]
